FAERS Safety Report 6906016-5 (Version None)
Quarter: 2010Q3

REPORT INFORMATION
  Report Type: 
  Country: None (occurrence: None)
  Receive Date: 20100804
  Receipt Date: 20100722
  Transmission Date: 20110219
  Serious: Yes (Other)
  Sender: FDA-Public Use
  Company Number: PHHY2010AU48223

PATIENT
  Sex: Female

DRUGS (1)
  1. CLOZARIL [Suspect]
     Indication: SCHIZOPHRENIA
     Dosage: 12.5 MG,UNK
     Dates: start: 20100721

REACTIONS (3)
  - HEMICEPHALALGIA [None]
  - SWELLING FACE [None]
  - SWOLLEN TONGUE [None]
